FAERS Safety Report 24652148 (Version 1)
Quarter: 2024Q4

REPORT INFORMATION
  Report Type: Spontaneous
  Country: US (occurrence: US)
  Receive Date: 20241122
  Receipt Date: 20241122
  Transmission Date: 20250115
  Serious: Yes (Other)
  Sender: ROCHE
  Company Number: US-ROCHE-10000135730

PATIENT
  Sex: Female

DRUGS (4)
  1. XOLAIR [Suspect]
     Active Substance: OMALIZUMAB
     Indication: Urticaria
     Route: 058
     Dates: start: 202411
  2. XOLAIR [Suspect]
     Active Substance: OMALIZUMAB
  3. TYLENOL [Concomitant]
     Active Substance: ACETAMINOPHEN
  4. MOTRIN [Concomitant]
     Active Substance: IBUPROFEN

REACTIONS (11)
  - Joint injury [Unknown]
  - Pain [Unknown]
  - Synovial cyst [Unknown]
  - Osteoporosis [Unknown]
  - Hepatic enzyme increased [Unknown]
  - Palpitations [Unknown]
  - Abdominal pain upper [Unknown]
  - Cholelithiasis [Unknown]
  - Renal cyst [Unknown]
  - Fall [Unknown]
  - Meniscus injury [Unknown]
